FAERS Safety Report 7408424-5 (Version None)
Quarter: 2011Q2

REPORT INFORMATION
  Report Type: 
  Country: None (occurrence: None)
  Receive Date: 20110401
  Receipt Date: 20110325
  Transmission Date: 20111010
  Serious: Yes (Death)
  Sender: FDA-Public Use
  Company Number: UTC-005952

PATIENT
  Age: 80 Year
  Sex: Female

DRUGS (2)
  1. REMODULIN [Suspect]
     Dosage: INTRAVENOUS
     Route: 042
     Dates: start: 20100729
  2. ADCIRCA [Concomitant]

REACTIONS (1)
  - DEATH [None]
